FAERS Safety Report 18973289 (Version 1)
Quarter: 2021Q1

REPORT INFORMATION
  Report Type: Spontaneous
  Country: CY (occurrence: CY)
  Receive Date: 20210305
  Receipt Date: 20210305
  Transmission Date: 20210420
  Serious: Yes (Other)
  Sender: FDA-Public Use
  Company Number: NVSC2021CY041681

PATIENT
  Age: 62 Year
  Sex: Female

DRUGS (4)
  1. BETALOC ? SLOW RELEASE [Concomitant]
     Indication: PALPATORY FINDING ABNORMAL
     Dosage: UNKNOWN DOSAGE
     Route: 048
  2. CRESTOR [Concomitant]
     Active Substance: ROSUVASTATIN CALCIUM
     Indication: BLOOD CHOLESTEROL INCREASED
     Dosage: UNKNOWN DOSAGE
     Route: 048
  3. NU?SEALS [Concomitant]
     Indication: PRODUCT USED FOR UNKNOWN INDICATION
     Dosage: UNKNOWN DOSAGE
     Route: 065
  4. BUDESONIDE. [Suspect]
     Active Substance: BUDESONIDE
     Indication: RHINORRHOEA
     Dosage: UNK (SPRAY ONCE IN EACH NOSTRIL MORNING AND NIGHT)
     Route: 045
     Dates: start: 20210107, end: 20210202

REACTIONS (1)
  - Vitreous detachment [Not Recovered/Not Resolved]
